FAERS Safety Report 8846789 (Version 1)
Quarter: 2012Q4

REPORT INFORMATION
  Report Type: Spontaneous
  Country: US (occurrence: None)
  Receive Date: 20121016
  Receipt Date: 20121016
  Transmission Date: 20130627
  Serious: Yes (Other)
  Sender: FDA-Public Use
  Company Number: CIO12016090

PATIENT
  Age: 78 Year
  Sex: Female

DRUGS (1)
  1. PEPTO [Suspect]
     Route: 048

REACTIONS (5)
  - Cataract [None]
  - Back injury [None]
  - Faeces discoloured [None]
  - Intervertebral disc compression [None]
  - Pain [None]
